FAERS Safety Report 25954967 (Version 1)
Quarter: 2025Q4

REPORT INFORMATION
  Report Type: Spontaneous
  Country: US (occurrence: US)
  Receive Date: 20251024
  Receipt Date: 20251024
  Transmission Date: 20260117
  Serious: Yes (Hospitalization)
  Sender: PARATEK PHARMACEUTICALS
  Company Number: US-PARATEK PHARMACEUTICALS, INC.-2025PTK01367

PATIENT
  Sex: Male

DRUGS (2)
  1. NUZYRA [Suspect]
     Active Substance: OMADACYCLINE
     Indication: Wound
     Dosage: UNK LOADING DOSE
     Route: 048
  2. NUZYRA [Suspect]
     Active Substance: OMADACYCLINE
     Dosage: 14 TABLETS FOR 7 DAYS
     Route: 048

REACTIONS (1)
  - Haemoglobin decreased [Not Recovered/Not Resolved]
